FAERS Safety Report 7400243-9 (Version None)
Quarter: 2011Q2

REPORT INFORMATION
  Report Type: 
  Country: None (occurrence: None)
  Receive Date: 20110407
  Receipt Date: 20110325
  Transmission Date: 20111010
  Serious: Yes (Death, Hospitalization, Disabling)
  Sender: FDA-Public Use
  Company Number: FI-ACTELION-A-CH2011-46694

PATIENT
  Sex: Male

DRUGS (11)
  1. GRISEOFULVIN [Concomitant]
  2. ISOTRETINOIN [Concomitant]
  3. DAPSON [Concomitant]
  4. PENICILLAMINE [Concomitant]
  5. CHLOROQUINE [Concomitant]
  6. PSORALENS FOR TOPICAL USE [Concomitant]
  7. REUMASYL [Concomitant]
  8. NEOTIGASON [Concomitant]
     Dosage: UNK
  9. CYCLOSPORINE [Concomitant]
  10. TRACLEER [Suspect]
     Indication: SKIN ULCER
     Dosage: 125 MG, BID
     Route: 048
     Dates: start: 20080401, end: 20100201
  11. METHOTREXATE [Concomitant]

REACTIONS (2)
  - SQUAMOUS CELL CARCINOMA OF SKIN [None]
  - INFECTION [None]
